FAERS Safety Report 5944744-9 (Version None)
Quarter: 2008Q4

REPORT INFORMATION
  Report Type: 
  Country: None (occurrence: None)
  Receive Date: 20081105
  Receipt Date: 20081023
  Transmission Date: 20090506
  Serious: Yes (Life-Threatening, Hospitalization)
  Sender: FDA-Public Use
  Company Number: PAR_02395_2008

PATIENT
  Age: 27 Year
  Sex: Male

DRUGS (6)
  1. CABERGOLINE [Suspect]
     Indication: BLOOD PROLACTIN ABNORMAL
     Dosage: (1.5 MG 1X/WEEK)
  2. CABERGOLINE [Suspect]
     Indication: PITUITARY TUMOUR BENIGN
     Dosage: (1.5 MG 1X/WEEK)
  3. CABERGOLINE [Suspect]
     Indication: BLOOD PROLACTIN ABNORMAL
     Dosage: (DF)
  4. CABERGOLINE [Suspect]
     Indication: PITUITARY TUMOUR BENIGN
     Dosage: (DF)
  5. CABERGOLINE [Suspect]
     Indication: BLOOD PROLACTIN ABNORMAL
     Dosage: (0.75 MG 1X/WEEK)
  6. CABERGOLINE [Suspect]
     Indication: PITUITARY TUMOUR BENIGN
     Dosage: (0.75 MG 1X/WEEK)

REACTIONS (8)
  - HEADACHE [None]
  - HEMIANOPIA HETERONYMOUS [None]
  - NEOPLASM PROGRESSION [None]
  - PITUITARY HAEMORRHAGE [None]
  - PITUITARY TUMOUR [None]
  - TUMOUR HAEMORRHAGE [None]
  - VISUAL IMPAIRMENT [None]
  - VISUAL PATHWAY DISORDER [None]
